FAERS Safety Report 6615370-3 (Version None)
Quarter: 2010Q1

REPORT INFORMATION
  Report Type: 
  Country: None (occurrence: None)
  Receive Date: 20100305
  Receipt Date: 20091214
  Transmission Date: 20100710
  Serious: No
  Sender: FDA-Public Use
  Company Number: A0807277A

PATIENT
  Age: 63 Year
  Sex: Female

DRUGS (5)
  1. REQUIP [Suspect]
     Indication: RESTLESS LEGS SYNDROME
     Route: 048
     Dates: start: 20090701
  2. REQUIP [Suspect]
     Dosage: .5MG UNKNOWN
     Route: 048
  3. ZOCOR [Concomitant]
  4. UNKNOWN [Concomitant]
  5. NEXIUM [Concomitant]

REACTIONS (1)
  - FATIGUE [None]
